FAERS Safety Report 6373439-5 (Version None)
Quarter: 2009Q3

REPORT INFORMATION
  Report Type: 
  Country: None (occurrence: None)
  Receive Date: 20090924
  Receipt Date: 20090309
  Transmission Date: 20100115
  Serious: No
  Sender: FDA-Public Use
  Company Number: US-ASTRAZENECA-2009UW06175

PATIENT
  Sex: Female
  Weight: 63 kg

DRUGS (2)
  1. SEROQUEL [Suspect]
     Indication: AGITATION
     Route: 048
  2. SEROQUEL [Suspect]
     Route: 048
     Dates: start: 20090308

REACTIONS (1)
  - ILL-DEFINED DISORDER [None]
